FAERS Safety Report 4982832-4 (Version None)
Quarter: 2006Q2

REPORT INFORMATION
  Report Type: 
  Country: None (occurrence: None)
  Receive Date: 20060425
  Receipt Date: 20050428
  Transmission Date: 20061013
  Serious: Yes (Hospitalization)
  Sender: FDA-Public Use
  Company Number: US-MERCK-0505USA00113

PATIENT
  Age: 84 Year
  Sex: Female
  Weight: 87 kg

DRUGS (2)
  1. VIOXX [Suspect]
     Indication: PAIN
     Route: 048
     Dates: start: 20030717, end: 20040921
  2. VIOXX [Suspect]
     Indication: ARTHRITIS
     Route: 048
     Dates: start: 20031104, end: 20040921

REACTIONS (7)
  - ASTHENIA [None]
  - CHEST PAIN [None]
  - CORONARY ARTERY DISEASE [None]
  - DRUG HYPERSENSITIVITY [None]
  - DYSPNOEA EXERTIONAL [None]
  - HYPOTENSION [None]
  - MYOCARDIAL INFARCTION [None]
